FAERS Safety Report 13191428 (Version 1)
Quarter: 2017Q1

REPORT INFORMATION
  Report Type: Spontaneous
  Country: US (occurrence: US)
  Receive Date: 20170207
  Receipt Date: 20170207
  Transmission Date: 20170428
  Serious: Yes (Other)
  Sender: FDA-Public Use
  Company Number: US-BRISTOL-MYERS SQUIBB COMPANY-BMS-2017-008351

PATIENT
  Age: 89 Year
  Sex: Male

DRUGS (1)
  1. OPDIVO [Suspect]
     Active Substance: NIVOLUMAB
     Indication: METASTATIC SQUAMOUS CELL CARCINOMA
     Dosage: UNK UNK, Q2WK
     Route: 042

REACTIONS (5)
  - Induration [Unknown]
  - Tenderness [Unknown]
  - Eosinophilic fasciitis [Unknown]
  - Swelling [Unknown]
  - Erythema [Unknown]
